FAERS Safety Report 10880173 (Version 1)
Quarter: 2015Q1

REPORT INFORMATION
  Report Type: Spontaneous
  Country: US (occurrence: US)
  Receive Date: 20150302
  Receipt Date: 20150302
  Transmission Date: 20150721
  Serious: No
  Sender: FDA-Public Use
  Company Number: US-PFIZER INC-2015070923

PATIENT
  Age: 71 Year
  Sex: Female
  Weight: 54 kg

DRUGS (3)
  1. GABAPENTIN. [Concomitant]
     Active Substance: GABAPENTIN
     Indication: NEUROPATHY PERIPHERAL
     Dosage: 600 MG, 2X/DAY
  2. PREMARIN [Suspect]
     Active Substance: ESTROGENS, CONJUGATED
     Indication: PREMATURE MENOPAUSE
     Dosage: UNK, 2X/WEEK
     Route: 067
     Dates: start: 20150223
  3. METRONIDAZOLE. [Concomitant]
     Active Substance: METRONIDAZOLE
     Indication: INFECTION
     Dosage: 0.75 %, WEEKLY
     Route: 067

REACTIONS (1)
  - Drug ineffective [Unknown]
